FAERS Safety Report 4432951-6 (Version None)
Quarter: 2004Q3

REPORT INFORMATION
  Report Type: 
  Country: None (occurrence: None)
  Receive Date: 20040726
  Receipt Date: 20040305
  Transmission Date: 20050211
  Serious: No
  Sender: FDA-Public Use
  Company Number: USA031254068

PATIENT
  Age: 76 Year
  Sex: Female
  Weight: 48 kg

DRUGS (17)
  1. FORTEO [Suspect]
     Indication: OSTEOPOROSIS
     Dates: start: 20030201
  2. NORVASC [Concomitant]
  3. SYNTHROID [Concomitant]
  4. VIOXX [Concomitant]
  5. NIZATIDINE [Concomitant]
  6. VALIUM [Concomitant]
  7. MULTIVITAMIN [Concomitant]
  8. CALTRATE (CALCIUM CARBONATE) [Concomitant]
  9. ASPIRIN [Concomitant]
  10. SOMA [Concomitant]
  11. BEN GAY [Concomitant]
  12. AMBIEN [Concomitant]
  13. DIDRONEL [Concomitant]
  14. CALCIUM WITH VITAMIN D [Concomitant]
  15. PREVACID [Concomitant]
  16. VICODIN [Concomitant]
  17. AXID [Concomitant]

REACTIONS (2)
  - FEAR [None]
  - MUSCLE CRAMP [None]
